FAERS Safety Report 17281038 (Version 1)
Quarter: 2020Q1

REPORT INFORMATION
  Report Type: Spontaneous
  Country: US (occurrence: US)
  Receive Date: 20200117
  Receipt Date: 20200117
  Transmission Date: 20200409
  Serious: No
  Sender: FDA-Public Use
  Company Number: US-AUROBINDO-AUR-APL-2019-007946

PATIENT
  Age: 26 Year
  Sex: Male
  Weight: 73 kg

DRUGS (1)
  1. DEXTROAMPHET SACCHARAT, AMPHET ASPARTATE, DEXTROAMPHET SULFATE AND AMPHET SULFAT [Suspect]
     Active Substance: AMPHETAMINE ASPARTATE\AMPHETAMINE SULFATE\DEXTROAMPHETAMINE SACCHARATE\DEXTROAMPHETAMINE SULFATE
     Indication: ATTENTION DEFICIT/HYPERACTIVITY DISORDER
     Dosage: 2 DOSAGE FORM, TWO TIMES A DAY
     Route: 048
     Dates: start: 20181114, end: 201812

REACTIONS (5)
  - Dizziness [Recovered/Resolved]
  - Irritability [Recovered/Resolved]
  - Product substitution issue [Recovered/Resolved]
  - Tension [Recovered/Resolved]
  - Anxiety [Recovered/Resolved]
